FAERS Safety Report 21065396 (Version 1)
Quarter: 2022Q3

REPORT INFORMATION
  Report Type: Spontaneous
  Country: GR (occurrence: GR)
  Receive Date: 20220711
  Receipt Date: 20220711
  Transmission Date: 20221027
  Serious: Yes (Hospitalization)
  Sender: FDA-Public Use
  Company Number: GR-Gedeon Richter Plc.-2022_GR_004366

PATIENT
  Sex: Female

DRUGS (4)
  1. CARIPRAZINE HYDROCHLORIDE [Suspect]
     Active Substance: CARIPRAZINE HYDROCHLORIDE
     Indication: Psychotic disorder
     Dosage: 3 MG
     Dates: start: 20220602
  2. CARIPRAZINE HYDROCHLORIDE [Suspect]
     Active Substance: CARIPRAZINE HYDROCHLORIDE
     Dosage: 4.5 MG, QD
     Dates: start: 20220530, end: 20220601
  3. CARIPRAZINE HYDROCHLORIDE [Suspect]
     Active Substance: CARIPRAZINE HYDROCHLORIDE
     Dosage: 3 MG, QD
     Dates: start: 20220529, end: 20220529
  4. CARIPRAZINE HYDROCHLORIDE [Suspect]
     Active Substance: CARIPRAZINE HYDROCHLORIDE
     Dosage: 1.5 MG, QD
     Dates: start: 20220527, end: 20220528

REACTIONS (2)
  - Vision blurred [Unknown]
  - Off label use [Unknown]

NARRATIVE: CASE EVENT DATE: 20220527
